FAERS Safety Report 6100598-1 (Version None)
Quarter: 2009Q1

REPORT INFORMATION
  Report Type: 
  Country: None (occurrence: None)
  Receive Date: 20090303
  Receipt Date: 20090227
  Transmission Date: 20090719
  Serious: Yes (Other)
  Sender: FDA-Public Use
  Company Number: JP-BRISTOL-MYERS SQUIBB COMPANY-14525679

PATIENT

DRUGS (1)
  1. BARACLUDE [Suspect]
     Route: 064

REACTIONS (1)
  - FOETAL MALFORMATION [None]
